FAERS Safety Report 5281131-3 (Version None)
Quarter: 2007Q1

REPORT INFORMATION
  Report Type: 
  Country: None (occurrence: None)
  Receive Date: 20070323
  Receipt Date: 20070312
  Transmission Date: 20070707
  Serious: Yes (Hospitalization, Other)
  Sender: FDA-Public Use
  Company Number: 238115

PATIENT
  Age: 60 Year
  Sex: Female

DRUGS (4)
  1. MABTHERA  (RITUXIMAB) CONC FOR SOLUTION FOR INFUSION [Suspect]
     Indication: LYMPHOMA
     Dates: end: 20070101
  2. CISPLATIN [Suspect]
     Indication: LYMPHOMA
  3. DEXAMETHASONE TAB [Suspect]
     Indication: LYMPHOMA
  4. CYTARABINE [Suspect]
     Indication: LYMPHOMA

REACTIONS (5)
  - ENCEPHALOPATHY [None]
  - HAEMOGLOBIN DECREASED [None]
  - NEUROPATHY PERIPHERAL [None]
  - NEUROTOXICITY [None]
  - PLATELET COUNT DECREASED [None]
